FAERS Safety Report 9685501 (Version 1)
Quarter: 2013Q4

REPORT INFORMATION
  Report Type: Spontaneous
  Country: GB (occurrence: GB)
  Receive Date: 20131113
  Receipt Date: 20131113
  Transmission Date: 20140711
  Serious: Yes (Hospitalization)
  Sender: FDA-Public Use
  Company Number: GB-MYLANLABS-2013S1024836

PATIENT
  Age: 74 Year
  Sex: Female

DRUGS (4)
  1. GABAPENTIN [Suspect]
     Indication: NEURALGIA
     Route: 048
     Dates: start: 2012, end: 201304
  2. GABAPENTIN [Suspect]
     Indication: NEURALGIA
     Route: 048
     Dates: start: 201304
  3. LERCANIDIPINE [Suspect]
     Indication: HYPERTENSION
  4. BENDROFLUMETHIAZIDE [Suspect]
     Indication: PRODUCT USED FOR UNKNOWN INDICATION

REACTIONS (4)
  - Dyspnoea [Not Recovered/Not Resolved]
  - Oedema peripheral [Not Recovered/Not Resolved]
  - Hypokalaemia [Unknown]
  - Hyponatraemia [Unknown]
